FAERS Safety Report 10651576 (Version 2)
Quarter: 2015Q1

REPORT INFORMATION
  Report Type: Spontaneous
  Country: JP (occurrence: JP)
  Receive Date: 20141215
  Receipt Date: 20150102
  Transmission Date: 20150720
  Serious: Yes (Life-Threatening, Hospitalization, Other)
  Sender: FDA-Public Use
  Company Number: JP-009507513-1412JPN004099

PATIENT
  Age: 58 Year
  Sex: Male
  Weight: 60 kg

DRUGS (2)
  1. PROPECIA [Suspect]
     Active Substance: FINASTERIDE
     Indication: ANDROGENETIC ALOPECIA
     Dosage: 1 MG, 1 X 1 DAY
     Route: 048
     Dates: start: 201112, end: 20141128
  2. EPINASTINE [Concomitant]
     Active Substance: EPINASTINE
     Indication: URTICARIA
     Dosage: 20 MG, QD
     Route: 048
     Dates: start: 201112, end: 20141128

REACTIONS (2)
  - Ventricular hypokinesia [Unknown]
  - Acute myocardial infarction [Recovering/Resolving]

NARRATIVE: CASE EVENT DATE: 20141128
